FAERS Safety Report 10291787 (Version 2)
Quarter: 2014Q3

REPORT INFORMATION
  Report Type: Spontaneous
  Country: US (occurrence: US)
  Receive Date: 20140710
  Receipt Date: 20140710
  Transmission Date: 20150326
  Serious: No
  Sender: FDA-Public Use
  Company Number: US-PURDUE-USA-2013-0106138

PATIENT
  Sex: Female

DRUGS (2)
  1. BUTRANS [Suspect]
     Active Substance: BUPRENORPHINE
     Indication: BACK PAIN
     Dosage: 5 MCG/HR, WEEKLY
     Route: 062
  2. TRAMADOL (SIMILAR TO NDA 21-745) [Concomitant]
     Active Substance: TRAMADOL
     Indication: PRODUCT USED FOR UNKNOWN INDICATION
     Dosage: 10 MG, UNK
     Route: 048

REACTIONS (7)
  - Inadequate analgesia [Unknown]
  - Fatigue [Unknown]
  - Memory impairment [Unknown]
  - Application site pruritus [Unknown]
  - Weight increased [Unknown]
  - Pain [Not Recovered/Not Resolved]
  - Medication residue present [Unknown]
